FAERS Safety Report 19609497 (Version 5)
Quarter: 2022Q2

REPORT INFORMATION
  Report Type: Report from Study
  Country: DE (occurrence: DE)
  Receive Date: 20210726
  Receipt Date: 20220524
  Transmission Date: 20220720
  Serious: Yes (Hospitalization)
  Sender: FDA-Public Use
  Company Number: DE-BAYER-2021-173244

PATIENT
  Sex: Female
  Weight: 59 kg

DRUGS (11)
  1. REGORAFENIB [Suspect]
     Active Substance: REGORAFENIB
     Indication: Hepatic cancer
     Dosage: 90 MG, QD
     Route: 048
     Dates: start: 20210629, end: 20210709
  2. REGORAFENIB [Suspect]
     Active Substance: REGORAFENIB
     Indication: Hepatic cancer
     Dosage: 60 MG, QD
     Route: 048
     Dates: start: 20210727, end: 20210802
  3. REGORAFENIB [Suspect]
     Active Substance: REGORAFENIB
     Indication: Hepatic cancer
     Dosage: 60 MG, QD
     Route: 048
     Dates: start: 20210803, end: 20210809
  4. REGORAFENIB [Suspect]
     Active Substance: REGORAFENIB
     Indication: Hepatic cancer
     Dosage: 60 MG, QD
     Route: 048
     Dates: start: 20210810, end: 20210815
  5. REGORAFENIB [Suspect]
     Active Substance: REGORAFENIB
     Indication: Hepatic cancer
     Dosage: 60 MG, QD
     Route: 048
     Dates: start: 20210831, end: 20210913
  6. REGORAFENIB [Suspect]
     Active Substance: REGORAFENIB
     Indication: Hepatic cancer
     Dosage: 60 MG, QD
     Route: 048
     Dates: start: 20210921, end: 20211004
  7. PEMBROLIZUMAB [Suspect]
     Active Substance: PEMBROLIZUMAB
     Indication: Hepatic cancer
     Dosage: 400 MG
     Route: 042
     Dates: start: 20210629, end: 20210629
  8. PEMBROLIZUMAB [Suspect]
     Active Substance: PEMBROLIZUMAB
     Indication: Hepatic cancer
     Dosage: 400 MG
     Route: 042
     Dates: start: 20210810, end: 20210810
  9. PEMBROLIZUMAB [Suspect]
     Active Substance: PEMBROLIZUMAB
     Indication: Hepatic cancer
     Dosage: UNK
     Dates: start: 20210810, end: 20210810
  10. PEMBROLIZUMAB [Suspect]
     Active Substance: PEMBROLIZUMAB
     Indication: Hepatic cancer
     Dosage: 400 MG
     Route: 042
     Dates: start: 20210921, end: 20210921
  11. PEMBROLIZUMAB [Suspect]
     Active Substance: PEMBROLIZUMAB
     Indication: Hepatic cancer
     Dosage: UNK
     Dates: start: 20210921, end: 20210921

REACTIONS (2)
  - Systemic inflammatory response syndrome [Recovered/Resolved]
  - Capillary leak syndrome [Recovered/Resolved]

NARRATIVE: CASE EVENT DATE: 20210709
